FAERS Safety Report 9649586 (Version 2)
Quarter: 2013Q4

REPORT INFORMATION
  Report Type: Spontaneous
  Country: US (occurrence: US)
  Receive Date: 20131028
  Receipt Date: 20131120
  Transmission Date: 20140711
  Serious: No
  Sender: FDA-Public Use
  Company Number: US-009507513-1310USA012704

PATIENT
  Age: 58 Year
  Sex: 0
  Weight: 86.17 kg

DRUGS (4)
  1. OXYTROL FOR WOMEN [Suspect]
     Indication: BLADDER SPASM
     Dosage: UNK, UNKNOWN
     Route: 062
     Dates: start: 20130905, end: 20130920
  2. WELLBUTRIN [Concomitant]
     Indication: PANIC DISORDER
  3. OMEPRAZOLE [Concomitant]
     Indication: DYSPEPSIA
  4. XARELTO [Concomitant]
     Indication: ANTICOAGULANT THERAPY

REACTIONS (3)
  - Application site rash [Not Recovered/Not Resolved]
  - Drug ineffective [Unknown]
  - Off label use [Unknown]
